FAERS Safety Report 6158281-2 (Version None)
Quarter: 2009Q2

REPORT INFORMATION
  Report Type: 
  Country: None (occurrence: None)
  Receive Date: 20090417
  Receipt Date: 20090409
  Transmission Date: 20091009
  Serious: Yes (Other)
  Sender: FDA-Public Use
  Company Number: US-ABBOTT-09P-163-0567250-00

PATIENT
  Sex: Female
  Weight: 61.29 kg

DRUGS (9)
  1. HUMIRA [Suspect]
     Indication: CROHN'S DISEASE
     Route: 058
     Dates: start: 20070101
  2. HUMIRA [Suspect]
     Indication: RHEUMATOID ARTHRITIS
  3. SEROQUEL [Concomitant]
     Indication: DRUG USE FOR UNKNOWN INDICATION
  4. ZOLOFT [Concomitant]
     Indication: DRUG USE FOR UNKNOWN INDICATION
  5. PRILOSEC [Concomitant]
     Indication: DRUG USE FOR UNKNOWN INDICATION
  6. CLONOPIN [Concomitant]
     Indication: DRUG USE FOR UNKNOWN INDICATION
  7. METHADONE [Concomitant]
     Indication: DRUG USE FOR UNKNOWN INDICATION
  8. REQUIP [Concomitant]
     Indication: DRUG USE FOR UNKNOWN INDICATION
  9. MACRODANTIN [Concomitant]
     Indication: DRUG USE FOR UNKNOWN INDICATION

REACTIONS (5)
  - ACCIDENTAL NEEDLE STICK [None]
  - GASTROINTESTINAL INFLAMMATION [None]
  - NEPHROLITHIASIS [None]
  - PAIN IN EXTREMITY [None]
  - RECTAL DISCHARGE [None]
